FAERS Safety Report 20015565 (Version 1)
Quarter: 2021Q4

REPORT INFORMATION
  Report Type: Spontaneous
  Country: US (occurrence: None)
  Receive Date: 20211101
  Receipt Date: 20211101
  Transmission Date: 20220303
  Serious: Yes (Life-Threatening, Hospitalization, Disabling, Other)
  Sender: FDA-Public Use
  Company Number: None

PATIENT
  Age: 32 Year
  Sex: Female
  Weight: 84.15 kg

DRUGS (1)
  1. CHANTIX [Suspect]
     Active Substance: VARENICLINE TARTRATE
     Indication: Smoking cessation therapy
     Dosage: FREQUENCY : TWICE A DAY;?
     Route: 048
     Dates: start: 20200212, end: 20200422

REACTIONS (21)
  - Feeling abnormal [None]
  - Poor quality sleep [None]
  - Anxiety [None]
  - Mood altered [None]
  - Bipolar disorder [None]
  - Substance-induced psychotic disorder [None]
  - Judgement impaired [None]
  - Irritability [None]
  - Depression [None]
  - Feeling abnormal [None]
  - Paranoia [None]
  - Delusion [None]
  - Loss of consciousness [None]
  - Antisocial behaviour [None]
  - Legal problem [None]
  - Pain [None]
  - Emotional distress [None]
  - Amnesia [None]
  - Emotional distress [None]
  - Anhedonia [None]
  - Economic problem [None]

NARRATIVE: CASE EVENT DATE: 20200501
